FAERS Safety Report 4818488-0 (Version None)
Quarter: 2005Q4

REPORT INFORMATION
  Report Type: 
  Country: None (occurrence: None)
  Receive Date: 20051101
  Receipt Date: 20051101
  Transmission Date: 20060501
  Serious: Yes (Life-Threatening, Hospitalization)
  Sender: FDA-Public Use
  Company Number: None

PATIENT
  Sex: Male
  Weight: 71.7 kg

DRUGS (2)
  1. BYETTA [Suspect]
     Indication: DIABETES MELLITUS NON-INSULIN-DEPENDENT
     Dosage: SQ
     Route: 058
     Dates: start: 20050901, end: 20051022
  2. .. [Concomitant]

REACTIONS (10)
  - DIARRHOEA [None]
  - DRUG ERUPTION [None]
  - ERYTHEMA MULTIFORME [None]
  - HISTOLOGY ABNORMAL [None]
  - HYPOTENSION [None]
  - NAUSEA [None]
  - RASH GENERALISED [None]
  - RASH MACULO-PAPULAR [None]
  - SKIN EXFOLIATION [None]
  - VOMITING [None]
